FAERS Safety Report 7449845-4 (Version None)
Quarter: 2011Q1

REPORT INFORMATION
  Report Type: 
  Country: None (occurrence: None)
  Receive Date: 20110302
  Receipt Date: 20101110
  Transmission Date: 20110831
  Serious: No
  Sender: FDA-Public Use
  Company Number: 021792

PATIENT
  Sex: Female

DRUGS (1)
  1. CIMZIA [Suspect]
     Indication: CROHN'S DISEASE
     Dosage: (SUBCUTANEOUS)
     Route: 058
     Dates: start: 20091101

REACTIONS (7)
  - FEELING ABNORMAL [None]
  - VISUAL IMPAIRMENT [None]
  - VOMITING [None]
  - PYREXIA [None]
  - INJECTION SITE HAEMORRHAGE [None]
  - FATIGUE [None]
  - INJECTION SITE SWELLING [None]
